FAERS Safety Report 12010872 (Version 2)
Quarter: 2016Q1

REPORT INFORMATION
  Report Type: Report from Study
  Country: US (occurrence: US)
  Receive Date: 20160205
  Receipt Date: 20160308
  Transmission Date: 20160526
  Serious: Yes (Other)
  Sender: FDA-Public Use
  Company Number: US-ACTELION-A-US2016-130837

PATIENT
  Age: 48 Year
  Sex: Male

DRUGS (9)
  1. MACITENTAN [Suspect]
     Active Substance: MACITENTAN
     Dosage: 10 MG, QD
     Route: 048
     Dates: start: 20150713
  2. METFORMIN [Concomitant]
     Active Substance: METFORMIN HYDROCHLORIDE
     Indication: ESSENTIAL HYPERTENSION
  3. ADCIRCA [Concomitant]
     Active Substance: TADALAFIL
  4. GLIPIZIDE. [Concomitant]
     Active Substance: GLIPIZIDE
  5. DIGOXIN. [Concomitant]
     Active Substance: DIGOXIN
  6. ASA [Concomitant]
     Active Substance: ASPIRIN
  7. MACITENTAN [Suspect]
     Active Substance: MACITENTAN
     Indication: PULMONARY ARTERIAL HYPERTENSION
     Dosage: 10 MG, QD
     Route: 048
     Dates: start: 20150730
  8. ELIQUIS [Concomitant]
     Active Substance: APIXABAN
  9. SIMVASTATIN. [Concomitant]
     Active Substance: SIMVASTATIN

REACTIONS (1)
  - Coronary arterial stent insertion [Unknown]

NARRATIVE: CASE EVENT DATE: 201601
